FAERS Safety Report 17356817 (Version 1)
Quarter: 2020Q1

REPORT INFORMATION
  Report Type: Spontaneous
  Country: CA (occurrence: CA)
  Receive Date: 20200131
  Receipt Date: 20200131
  Transmission Date: 20200409
  Serious: Yes (Other)
  Sender: FDA-Public Use
  Company Number: CA-B.I. PHARMACEUTICALS,INC./RIDGEFIELD-2020-BI-004913

PATIENT
  Age: 52 Year
  Sex: Male

DRUGS (5)
  1. QVAR [Suspect]
     Active Substance: BECLOMETHASONE DIPROPIONATE
     Indication: PRODUCT USED FOR UNKNOWN INDICATION
     Dosage: DOSAGE FORM-  METERED-DOSE (AEROSOL).   SOLUTION FOR ORAL INHALATION ONLY
     Route: 065
  2. FLUTICASONE PROPIONATE;SALMETEROL XINAFOATE [Suspect]
     Active Substance: FLUTICASONE PROPIONATE\SALMETEROL XINAFOATE
     Indication: PRODUCT USED FOR UNKNOWN INDICATION
     Route: 065
  3. SPIRIVA [Suspect]
     Active Substance: TIOTROPIUM BROMIDE MONOHYDRATE
     Indication: PRODUCT USED FOR UNKNOWN INDICATION
     Route: 065
  4. NUCALA [Suspect]
     Active Substance: MEPOLIZUMAB
     Indication: PRODUCT USED FOR UNKNOWN INDICATION
     Route: 065
  5. VENTOLIN [Suspect]
     Active Substance: ALBUTEROL SULFATE
     Indication: PRODUCT USED FOR UNKNOWN INDICATION
     Route: 065

REACTIONS (5)
  - Supraventricular extrasystoles [Unknown]
  - Obstructive airways disorder [Unknown]
  - Blood count abnormal [Unknown]
  - Tachycardia [Unknown]
  - Electrocardiogram PR shortened [Unknown]
